FAERS Safety Report 25483404 (Version 1)
Quarter: 2025Q2

REPORT INFORMATION
  Report Type: Spontaneous
  Country: US (occurrence: US)
  Receive Date: 20250626
  Receipt Date: 20250626
  Transmission Date: 20250716
  Serious: No
  Sender: YILING PHARMACEUTICAL LTD
  Company Number: US-YILING-2025YPSPO0014

PATIENT
  Sex: Male

DRUGS (3)
  1. FELODIPINE [Suspect]
     Active Substance: FELODIPINE
     Indication: Hypertension
     Dosage: ONCE DAILY
     Route: 065
     Dates: start: 20250313
  2. Candesaetin [Concomitant]
     Indication: Product used for unknown indication
     Route: 065
  3. Andapamide [Concomitant]
     Indication: Product used for unknown indication
     Route: 065

REACTIONS (1)
  - Therapeutic response decreased [Unknown]

NARRATIVE: CASE EVENT DATE: 20250313
